FAERS Safety Report 20279848 (Version 1)
Quarter: 2022Q1

REPORT INFORMATION
  Report Type: Report from Study
  Country: CN (occurrence: None)
  Receive Date: 20220103
  Receipt Date: 20220103
  Transmission Date: 20220423
  Serious: Yes (Hospitalization)
  Sender: FDA-Public Use
  Company Number: 2021A909391

PATIENT
  Age: 55 Year
  Sex: Male
  Weight: 89.5 kg

DRUGS (2)
  1. SAVOLITINIB [Suspect]
     Active Substance: SAVOLITINIB
     Indication: Non-small cell lung cancer
     Dosage: CYCLE1(600 MG, QD)
     Route: 048
     Dates: start: 20211115, end: 20211205
  2. SAVOLITINIB [Suspect]
     Active Substance: SAVOLITINIB
     Indication: Non-small cell lung cancer
     Dosage: CYCLE1(600 MG, QD)
     Route: 048
     Dates: start: 20211206, end: 20211213

REACTIONS (1)
  - Hepatic function abnormal [Not Recovered/Not Resolved]

NARRATIVE: CASE EVENT DATE: 20211222
